FAERS Safety Report 16663337 (Version 1)
Quarter: 2019Q3

REPORT INFORMATION
  Report Type: Spontaneous
  Country: DE (occurrence: DE)
  Receive Date: 20190802
  Receipt Date: 20190802
  Transmission Date: 20191004
  Serious: Yes (Disabling)
  Sender: FDA-Public Use
  Company Number: DE-IPSEN-CABO-18017662

PATIENT
  Age: 59 Year
  Sex: Male
  Weight: 85 kg

DRUGS (5)
  1. PALLADON [Concomitant]
     Active Substance: HYDROMORPHONE
  2. CABOMETYX [Suspect]
     Active Substance: CABOZANTINIB S-MALATE
     Dosage: 20 MG, UNK
     Dates: start: 2018
  3. CABOMETYX [Suspect]
     Active Substance: CABOZANTINIB S-MALATE
     Indication: METASTATIC RENAL CELL CARCINOMA
     Dosage: 60 MG, UNK
     Dates: start: 20180915, end: 2018
  4. HCT [Concomitant]
     Active Substance: HYDROCHLOROTHIAZIDE
  5. CANDESARTAN. [Concomitant]
     Active Substance: CANDESARTAN

REACTIONS (1)
  - Palmar-plantar erythrodysaesthesia syndrome [Recovered/Resolved]

NARRATIVE: CASE EVENT DATE: 20181101
